FAERS Safety Report 9683847 (Version 1)
Quarter: 2013Q4

REPORT INFORMATION
  Report Type: Spontaneous
  Country: US (occurrence: None)
  Receive Date: 20131111
  Receipt Date: 20131111
  Transmission Date: 20140711
  Serious: No
  Sender: FDA-Public Use
  Company Number: None

PATIENT
  Age: 61 Year
  Sex: Female
  Weight: 63.5 kg

DRUGS (1)
  1. LEVAQUIN [Suspect]
     Indication: PNEUMONIA
     Dosage: 1 TABLET, ONCE DAILY, TAKEN BY MOUTH
     Route: 048
     Dates: start: 20131019, end: 20131021

REACTIONS (12)
  - Cough [None]
  - Anxiety [None]
  - Claustrophobia [None]
  - Formication [None]
  - Panic reaction [None]
  - Decreased appetite [None]
  - Diarrhoea [None]
  - Insomnia [None]
  - Restlessness [None]
  - Confusional state [None]
  - Psychotic disorder [None]
  - Middle insomnia [None]
